FAERS Safety Report 21375197 (Version 1)
Quarter: 2022Q3

REPORT INFORMATION
  Report Type: Spontaneous
  Country: US (occurrence: US)
  Receive Date: 20220926
  Receipt Date: 20220926
  Transmission Date: 20221027
  Serious: Yes (Hospitalization)
  Sender: FDA-Public Use
  Company Number: US-AVET LIFESCIENCES LTD-2022-AVET-000170

PATIENT
  Age: 75 Year
  Sex: Female

DRUGS (1)
  1. SULFAMETHOXAZOLE\TRIMETHOPRIM [Suspect]
     Active Substance: SULFAMETHOXAZOLE\TRIMETHOPRIM
     Indication: Urinary tract infection
     Dosage: COMPLETED A 5-DAY COURSE OF TRIMETHOPRIM-SULFAMETHOXAZOLE

REACTIONS (2)
  - Cryoglobulinaemia [Recovering/Resolving]
  - Cutaneous vasculitis [Recovering/Resolving]
